FAERS Safety Report 18573176 (Version 2)
Quarter: 2020Q4

REPORT INFORMATION
  Report Type: Spontaneous
  Country: DE (occurrence: DE)
  Receive Date: 20201203
  Receipt Date: 20201208
  Transmission Date: 20210114
  Serious: Yes (Life-Threatening, Other)
  Sender: FDA-Public Use
  Company Number: DE-BRISTOL-MYERS SQUIBB COMPANY-BMS-2020-101341

PATIENT
  Age: 62 Year

DRUGS (2)
  1. IPILIMUMAB [Suspect]
     Active Substance: IPILIMUMAB
     Indication: MALIGNANT MELANOMA
     Dosage: 3 MILLIGRAM/KILOGRAM
     Route: 065
     Dates: start: 201504, end: 201506
  2. OPDIVO [Suspect]
     Active Substance: NIVOLUMAB
     Indication: MALIGNANT MELANOMA
     Dosage: 3 MILLIGRAM/KILOGRAM
     Route: 042
     Dates: start: 20150714

REACTIONS (7)
  - Pyrexia [Unknown]
  - Hypoxia [Unknown]
  - Chills [Unknown]
  - Dyspnoea [Unknown]
  - Productive cough [Unknown]
  - Off label use [Unknown]
  - Hot flush [Unknown]

NARRATIVE: CASE EVENT DATE: 20150715
